FAERS Safety Report 9236031 (Version 2)
Quarter: 2013Q2

REPORT INFORMATION
  Report Type: Report from Study
  Country: CA (occurrence: CA)
  Receive Date: 20130417
  Receipt Date: 20130614
  Transmission Date: 20140414
  Serious: Yes (Hospitalization, Other)
  Sender: FDA-Public Use
  Company Number: CA-JNJFOC-20120800518

PATIENT
  Age: 26 Year
  Sex: Female
  Weight: 87.7 kg

DRUGS (11)
  1. REMICADE [Suspect]
     Indication: COLITIS ULCERATIVE
     Route: 042
     Dates: start: 20100624
  2. REMICADE [Suspect]
     Indication: COLITIS ULCERATIVE
     Route: 042
     Dates: start: 201305
  3. VITAMIN D [Concomitant]
     Route: 065
  4. BENADRYL [Concomitant]
     Indication: PREMEDICATION
     Route: 048
  5. TYLENOL [Concomitant]
     Indication: PREMEDICATION
     Route: 048
  6. SOLU CORTEF [Concomitant]
     Route: 042
  7. HYDROCORTISONE [Concomitant]
     Indication: PREMEDICATION
     Route: 042
  8. PRENATAL VITAMINS [Concomitant]
     Route: 065
  9. SULFASALAZINE [Concomitant]
     Route: 065
  10. CALCIUM [Concomitant]
     Route: 065
  11. IRON [Concomitant]
     Route: 065

REACTIONS (3)
  - Exposure during pregnancy [Recovered/Resolved]
  - Hypertension [Unknown]
  - Colitis ulcerative [Unknown]
